FAERS Safety Report 8362892-3 (Version None)
Quarter: 2012Q1

REPORT INFORMATION
  Report Type: 
  Country: None (occurrence: None)
  Receive Date: 20120323
  Receipt Date: 20110420
  Transmission Date: 20120608
  Serious: Yes (Hospitalization)
  Sender: FDA-Public Use
  Company Number: 163-21880-11042762

PATIENT
  Age: 69 Year
  Sex: Male

DRUGS (8)
  1. PROCHLORPERAZINE MALEATE [Concomitant]
  2. METOPROLOL TARTRATE [Concomitant]
  3. REVLIMID [Suspect]
     Indication: MULTIPLE MYELOMA
     Dosage: 25 MG, DAILY, PO
     Route: 048
     Dates: start: 20100101, end: 20100501
  4. ACYCLOVIR [Concomitant]
  5. GABAPENTIN [Concomitant]
  6. RANITIDINE HYDROCHLORIDE [Concomitant]
  7. WARFARIN SODIUM [Concomitant]
  8. ASPIRIN [Concomitant]

REACTIONS (1)
  - PULMONARY EMBOLISM [None]
